FAERS Safety Report 18812589 (Version 2)
Quarter: 2021Q1

REPORT INFORMATION
  Report Type: Report from Study
  Country: PK (occurrence: PK)
  Receive Date: 20210130
  Receipt Date: 20210208
  Transmission Date: 20210419
  Serious: Yes (Hospitalization, Other)
  Sender: FDA-Public Use
  Company Number: NVSC2021PK017024

PATIENT
  Age: 49 Year
  Sex: Male

DRUGS (9)
  1. CONCOR [Concomitant]
     Active Substance: BISOPROLOL FUMARATE
     Indication: HYPERTENSION
     Dosage: 2.5 MG, QD
     Route: 048
     Dates: start: 20180808
  2. LIBRAX [Concomitant]
     Active Substance: CHLORDIAZEPOXIDE HYDROCHLORIDE\CLIDINIUM BROMIDE
     Indication: MUSCLE SPASMS
     Dosage: UNK, (SOS)
     Route: 048
     Dates: start: 20190919, end: 20201224
  3. EXFORGE [Suspect]
     Active Substance: AMLODIPINE BESYLATE\VALSARTAN
     Indication: HYPERTENSION
     Dosage: 1 DF, QD, IN THE MORNING
     Route: 048
     Dates: start: 20180808, end: 202012
  4. LIPIGET [Concomitant]
     Indication: LIPIDS
     Dosage: 10 MG, QD
     Route: 048
     Dates: start: 20180808
  5. EXFORGE [Suspect]
     Active Substance: AMLODIPINE BESYLATE\VALSARTAN
     Dosage: 1.5 DF, QD, (1 TABLET IN THE MORNING AND HALF AT NIGHT)
     Route: 065
     Dates: start: 20201224
  6. LEXOTANIL [Concomitant]
     Active Substance: BROMAZEPAM
     Indication: ANXIETY
     Dosage: 3 MG, PRN (SOS)
     Route: 048
     Dates: start: 20180808
  7. LEVOPRAID [Concomitant]
     Indication: GASTRIC DISORDER
     Dosage: 25 MG, BID
     Route: 048
     Dates: start: 20180211, end: 20201224
  8. ASCARD [Concomitant]
     Indication: BLOOD DISORDER
     Dosage: 75 MG, QD
     Route: 048
     Dates: start: 20180808, end: 20201224
  9. PAROXIN [Concomitant]
     Indication: DEPRESSION
     Dosage: 0.5 DF (25 MG), QD
     Route: 048
     Dates: start: 20190211, end: 20201224

REACTIONS (2)
  - Blood pressure increased [Recovering/Resolving]
  - Wrong technique in product usage process [Not Recovered/Not Resolved]

NARRATIVE: CASE EVENT DATE: 202011
